FAERS Safety Report 5196909-4 (Version None)
Quarter: 2007Q1

REPORT INFORMATION
  Report Type: 
  Country: None (occurrence: None)
  Receive Date: 20070103
  Receipt Date: 20061222
  Transmission Date: 20070707
  Serious: Yes (Death, Hospitalization)
  Sender: FDA-Public Use
  Company Number: CA-ROCHE-473164

PATIENT
  Age: 55 Year
  Sex: Female

DRUGS (16)
  1. PEGASYS [Suspect]
     Indication: HEPATITIS C
     Dosage: FORM REPORTED AS PRE-FILLED SYRINGE. THERAPY DELAYED FOR ONE WEEK APPROXIMATELY.
     Route: 058
     Dates: start: 20060615, end: 20061025
  2. PEGASYS [Suspect]
     Route: 058
     Dates: start: 20061105, end: 20061115
  3. COPEGUS [Suspect]
     Indication: HEPATITIS C
     Dosage: THERAPY WAS DELAYED FOR ONE WEEK APPROXIMATELY.
     Route: 048
     Dates: start: 20060615, end: 20061025
  4. COPEGUS [Suspect]
     Route: 048
     Dates: start: 20061105, end: 20061115
  5. PROGRAF [Suspect]
     Indication: PROPHYLAXIS AGAINST TRANSPLANT REJECTION
     Route: 048
  6. PROGRAF [Suspect]
     Dosage: AT THE END OF OCTOBER, THE DOSE OF PROGRAFT WAS DECREASED BY 1 MG.
     Route: 048
     Dates: start: 20061025, end: 20061215
  7. ASPIRIN [Concomitant]
     Route: 048
     Dates: end: 20061215
  8. ATARAX [Concomitant]
     Indication: URTICARIA
     Dosage: DRUG REPORTED AS ALTARAX.
     Route: 048
     Dates: end: 20061215
  9. CALCIUM [Concomitant]
     Route: 048
     Dates: end: 20061215
  10. CLONAZEPAM [Concomitant]
     Indication: ANXIETY
     Route: 048
     Dates: end: 20061215
  11. EFFEXOR [Concomitant]
     Indication: ANXIETY
     Route: 048
     Dates: end: 20061215
  12. EPREX [Concomitant]
     Dosage: STRENGHT AND FORMULATION REPORTED AS 40000 IU/ML PRE-FILLED SYRINGE.
     Route: 058
     Dates: end: 20061215
  13. IMOVANE [Concomitant]
     Indication: SLEEP DISORDER
     Dosage: GIVEN AT BEDTIME.
     Route: 048
     Dates: end: 20061215
  14. SERAX [Concomitant]
     Indication: ANXIETY
     Route: 048
     Dates: end: 20061215
  15. LOSEC [Concomitant]
     Indication: PROPHYLAXIS
     Route: 048
     Dates: end: 20061215
  16. VITAMINS-MULTIVITAMIN [Concomitant]
     Indication: ROUTINE HEALTH MAINTENANCE
     Route: 048
     Dates: end: 20061215

REACTIONS (5)
  - BLOOD CREATININE INCREASED [None]
  - HEPATIC ENZYME INCREASED [None]
  - INGUINAL HERNIA, OBSTRUCTIVE [None]
  - LIVER TRANSPLANT REJECTION [None]
  - SEPSIS [None]
